FAERS Safety Report 16758298 (Version 1)
Quarter: 2019Q3

REPORT INFORMATION
  Report Type: Spontaneous
  Country: DE (occurrence: DE)
  Receive Date: 20190830
  Receipt Date: 20190830
  Transmission Date: 20191005
  Serious: Yes (Hospitalization, Other)
  Sender: FDA-Public Use
  Company Number: DE-AUROBINDO-AUR-APL-2019-056879

PATIENT

DRUGS (6)
  1. FUROSEMIDE. [Concomitant]
     Active Substance: FUROSEMIDE
     Indication: CARDIAC FAILURE
     Dosage: UNK
     Route: 065
  2. SPIRONOLACTONE. [Concomitant]
     Active Substance: SPIRONOLACTONE
     Indication: CARDIAC FAILURE
     Dosage: UNK
     Route: 065
  3. BUPRENORPHINE. [Concomitant]
     Active Substance: BUPRENORPHINE
     Indication: PAIN
     Dosage: UNK
     Route: 065
     Dates: start: 2018
  4. TORASEMID [Concomitant]
     Active Substance: TORSEMIDE
     Indication: CARDIAC FAILURE
     Dosage: UNK
     Route: 065
  5. DULOXETINE GASTRO-RESISTANT CAPSULES 30MG [Suspect]
     Active Substance: DULOXETINE
     Indication: PAIN
     Dosage: 30 MG 1-0-0
     Route: 048
     Dates: start: 20190806, end: 20190807
  6. ONDANSETRON [Suspect]
     Active Substance: ONDANSETRON
     Indication: NAUSEA
     Dosage: EINMALIGE GABE BEI UEBELKEIT NACH GABE VON DULOXETIN
     Route: 042
     Dates: start: 20190806, end: 20190806

REACTIONS (5)
  - Sopor [Recovered/Resolved]
  - Apnoea [Recovered/Resolved]
  - Areflexia [Recovered/Resolved]
  - Unresponsive to stimuli [Recovered/Resolved]
  - Disturbance in attention [Recovered/Resolved]

NARRATIVE: CASE EVENT DATE: 20190808
